FAERS Safety Report 5127919-0 (Version None)
Quarter: 2006Q4

REPORT INFORMATION
  Report Type: 
  Country: None (occurrence: None)
  Receive Date: 20061013
  Receipt Date: 20061013
  Transmission Date: 20070319
  Serious: Yes (Hospitalization)
  Sender: FDA-Public Use
  Company Number: None

PATIENT
  Age: 53 Year
  Sex: Male
  Weight: 35 kg

DRUGS (14)
  1. PANITUMUMAB [Suspect]
     Indication: TONSIL CANCER
     Dosage: WEEKLY, IV, 2.5 MG/KG
     Route: 042
     Dates: start: 20060912, end: 20061010
  2. ALKOLOL [Concomitant]
  3. KCL SOLUTION [Concomitant]
  4. MINOCIN [Concomitant]
  5. NYSTATIN [Concomitant]
  6. PRILOSEC [Concomitant]
  7. AMBIEN [Concomitant]
  8. REGLAN [Concomitant]
  9. ROBITUSSIN [Concomitant]
  10. ROXICET [Concomitant]
  11. ZOFRAN [Concomitant]
  12. ATIVAN [Concomitant]
  13. DURAGESIC-100 [Concomitant]
  14. HYDROCORTISONE ACETATE [Concomitant]

REACTIONS (2)
  - FEBRILE NEUTROPENIA [None]
  - WHITE BLOOD CELL COUNT DECREASED [None]
